FAERS Safety Report 5135480-X (Version None)
Quarter: 2006Q4

REPORT INFORMATION
  Report Type: 
  Country: None (occurrence: None)
  Receive Date: 20061026
  Receipt Date: 20061017
  Transmission Date: 20070319
  Serious: Yes (Other)
  Sender: FDA-Public Use
  Company Number: 2006AC01915

PATIENT
  Age: 17923 Day
  Sex: Female
  Weight: 70 kg

DRUGS (6)
  1. CRESTOR [Suspect]
     Indication: PROPHYLAXIS
     Route: 048
     Dates: start: 20060916, end: 20061010
  2. ASPIRIN [Concomitant]
  3. ANTI-CALCIC [Concomitant]
  4. ANTI-CALCIC [Concomitant]
  5. ANTIAGGRATING PLATELET [Concomitant]
  6. BETA BLOCKER [Concomitant]

REACTIONS (2)
  - HOT FLUSH [None]
  - VERTIGO [None]
